FAERS Safety Report 21785114 (Version 8)
Quarter: 2024Q4

REPORT INFORMATION
  Report Type: Spontaneous
  Country: IN (occurrence: IN)
  Receive Date: 20221227
  Receipt Date: 20241011
  Transmission Date: 20250115
  Serious: Yes (Other)
  Sender: PFIZER
  Company Number: IN-PFIZER INC-PV202200082070

PATIENT
  Age: 32 Year
  Sex: Female
  Weight: 243 kg

DRUGS (2)
  1. LORLATINIB [Suspect]
     Active Substance: LORLATINIB
     Indication: Non-small cell lung cancer
     Dosage: 100 MG
     Route: 048
     Dates: start: 20220701
  2. LORLATINIB [Suspect]
     Active Substance: LORLATINIB
     Dosage: 100 MG, ALTERNATE DAY
     Route: 048

REACTIONS (20)
  - Infectious pleural effusion [Unknown]
  - Empyema [Unknown]
  - Haemoglobin decreased [Unknown]
  - Dysphonia [Unknown]
  - Pyrexia [Unknown]
  - Eye swelling [Unknown]
  - Peripheral swelling [Unknown]
  - Headache [Unknown]
  - Blood pressure diastolic increased [Unknown]
  - Liver disorder [Unknown]
  - Cardiac disorder [Unknown]
  - Pleural effusion [Unknown]
  - Lymphadenopathy [Unknown]
  - Neoplasm progression [Unknown]
  - Infection [Unknown]
  - Platelet count decreased [Unknown]
  - Asthenia [Unknown]
  - Wrong technique in product usage process [Unknown]
  - Weight decreased [Unknown]
  - Off label use [Unknown]
